FAERS Safety Report 8745675 (Version 2)
Quarter: 2012Q4

REPORT INFORMATION
  Report Type: Report from Study
  Country: AT (occurrence: AT)
  Receive Date: 20120826
  Receipt Date: 20121018
  Transmission Date: 20130627
  Serious: Yes (Hospitalization)
  Sender: FDA-Public Use
  Company Number: AT-AMGEN-AUTCT2012053403

PATIENT
  Age: 68 Year
  Sex: Female

DRUGS (1)
  1. DENOSUMAB [Suspect]
     Indication: BONE DENSITY DECREASED
     Dosage: 60 mg, UNK
     Dates: start: 20120112

REACTIONS (1)
  - Angina pectoris [Recovered/Resolved]
